FAERS Safety Report 23128695 (Version 3)
Quarter: 2024Q1

REPORT INFORMATION
  Report Type: Spontaneous
  Country: US (occurrence: US)
  Receive Date: 20231031
  Receipt Date: 20240214
  Transmission Date: 20240410
  Serious: Yes (Other)
  Sender: FDA-Public Use
  Company Number: US-BRISTOL-MYERS SQUIBB COMPANY-2023-152711

PATIENT
  Age: 86 Year
  Sex: Male
  Weight: 93.4 kg

DRUGS (1)
  1. REVLIMID [Suspect]
     Active Substance: LENALIDOMIDE
     Indication: Myelodysplastic syndrome
     Route: 048
     Dates: start: 20230926

REACTIONS (3)
  - Hypotension [Unknown]
  - Platelet count decreased [Unknown]
  - Thrombocytopenia [Not Recovered/Not Resolved]
